FAERS Safety Report 6089479-X (Version None)
Quarter: 2009Q1

REPORT INFORMATION
  Report Type: 
  Country: None (occurrence: None)
  Receive Date: 20090224
  Receipt Date: 20090218
  Transmission Date: 20090719
  Serious: Yes (Hospitalization)
  Sender: FDA-Public Use
  Company Number: DE-BRISTOL-MYERS SQUIBB COMPANY-14511752

PATIENT
  Age: 58 Year
  Sex: Male

DRUGS (6)
  1. BLINDED: IPILIMUMAB [Suspect]
     Indication: LUNG NEOPLASM MALIGNANT
     Dosage: THERAPY INITIATED ON 05DEC2008
     Route: 042
     Dates: start: 20081229, end: 20081229
  2. BLINDED: PLACEBO [Suspect]
     Indication: LUNG NEOPLASM MALIGNANT
     Route: 042
     Dates: start: 20081229, end: 20081229
  3. TAXOL [Suspect]
     Indication: LUNG NEOPLASM MALIGNANT
     Dosage: THERAPY INITIATED ON 05DEC2008
     Route: 042
     Dates: start: 20081229, end: 20081229
  4. PARAPLATIN [Suspect]
     Indication: LUNG NEOPLASM MALIGNANT
     Dosage: THERAPY INITIATED ON 05DEC2008
     Route: 042
     Dates: start: 20081229, end: 20081229
  5. NOVALGIN [Concomitant]
     Dates: start: 20081126
  6. HALOPERIDOL [Concomitant]
     Dates: start: 20081126

REACTIONS (1)
  - ENTERITIS [None]
